FAERS Safety Report 5114940-1 (Version None)
Quarter: 2006Q3

REPORT INFORMATION
  Report Type: 
  Country: None (occurrence: None)
  Receive Date: 20060925
  Receipt Date: 20060925
  Transmission Date: 20061208
  Serious: No
  Sender: FDA-Public Use
  Company Number: None

PATIENT
  Age: 26 Year
  Sex: Female
  Weight: 81.6475 kg

DRUGS (1)
  1. PREVIFEM [Suspect]
     Indication: MENSTRUATION IRREGULAR
     Dosage: 1 TABLET   DAILY   PO
     Route: 048

REACTIONS (4)
  - MENSTRUAL DISORDER [None]
  - MOOD ALTERED [None]
  - PERSONALITY CHANGE [None]
  - PHARMACEUTICAL PRODUCT COMPLAINT [None]
